FAERS Safety Report 8987972 (Version 2)
Quarter: 2013Q1

REPORT INFORMATION
  Report Type: Report from Study
  Country: US (occurrence: US)
  Receive Date: 20121227
  Receipt Date: 20130322
  Transmission Date: 20140127
  Serious: Yes (Hospitalization)
  Sender: FDA-Public Use
  Company Number: US-PFIZER INC-2012320862

PATIENT
  Age: 55 Year
  Sex: Male
  Weight: 120.6 kg

DRUGS (22)
  1. FLUOROURACIL [Suspect]
     Indication: COLORECTAL CANCER METASTATIC
     Dosage: 200 MG/M2, ON DAY 1 EVERY 14 DAYS
     Route: 040
     Dates: start: 20120321, end: 20121127
  2. FLUOROURACIL [Suspect]
     Dosage: 2000 MG/M2, ON DAYS 1 AND 2 EVERY 14 DAYS
     Route: 042
     Dates: start: 20120321, end: 20121127
  3. IRINOTECAN HCL [Suspect]
     Indication: COLORECTAL CANCER METASTATIC
     Dosage: 150 MG/M2, ON DAY 1 EVERY 14 DAYS
     Route: 042
     Dates: start: 20120321, end: 20121127
  4. FOLINIC ACID [Suspect]
     Indication: COLORECTAL CANCER METASTATIC
     Dosage: 400 MG/M2, DAY 1 EVERY 14 DAYS
     Route: 042
     Dates: start: 20120321, end: 20121127
  5. BLINDED THERAPY [Suspect]
     Indication: COLORECTAL CANCER METASTATIC
     Dosage: CYCLE 1
     Dates: start: 20120321, end: 20121127
  6. ACETYLSALICYLIC ACID [Concomitant]
     Indication: CARDIOVASCULAR EVENT PROPHYLAXIS
     Dosage: UNK
     Dates: start: 20120110
  7. ESTRADIOL [Concomitant]
     Indication: DYSPHORIA
     Dosage: UNK
     Dates: start: 20120803
  8. GABAPENTIN [Concomitant]
     Indication: NEURALGIA
     Dosage: UNK
     Dates: start: 20120814
  9. MEDROXYPROGESTERONE ACETATE [Concomitant]
     Indication: DYSPHORIA
     Dosage: UNK
     Dates: start: 20120803
  10. METFORMIN [Concomitant]
     Indication: DIABETES MELLITUS
     Dosage: UNK
     Dates: start: 20120323
  11. MORPHINE SULFATE [Concomitant]
     Indication: PAIN
     Dosage: UNK
     Dates: start: 20121211, end: 20130107
  12. OMEPRAZOLE [Concomitant]
     Indication: GASTROOESOPHAGEAL REFLUX DISEASE
     Dosage: UNK
     Dates: start: 20120918
  13. DOCUSATE [Concomitant]
     Indication: CONSTIPATION
     Dosage: UNK
     Dates: start: 20120501
  14. ONDANSETRON [Concomitant]
     Indication: NAUSEA
     Dosage: UNK
     Dates: start: 20110211
  15. PROCHLORPERAZINE [Concomitant]
     Indication: NAUSEA
     Dosage: UNK
     Dates: start: 20100611
  16. SIMETHICONE [Concomitant]
     Indication: FLATULENCE
     Dosage: UNK
     Dates: start: 20120911
  17. SIMVASTATIN [Concomitant]
     Indication: HYPERCHOLESTEROLAEMIA
     Dosage: UNK
     Dates: start: 20120110
  18. TRAZODONE [Concomitant]
     Indication: INSOMNIA
     Dosage: UNK
     Dates: start: 20110801
  19. ATENOLOL [Concomitant]
     Indication: HYPERTENSION
     Dosage: UNK
     Dates: start: 20120801, end: 20121206
  20. SPIRONOLACTONE [Concomitant]
     Indication: POLYURIA
     Dosage: UNK
     Dates: start: 20120803, end: 20121206
  21. FUROSEMIDE [Concomitant]
     Indication: OEDEMA
     Dosage: UNK
     Dates: start: 20120308, end: 20121206
  22. PANTOPRAZOLE [Concomitant]
     Indication: HYPERCHLORHYDRIA
     Dosage: UNK
     Dates: start: 20120914

REACTIONS (1)
  - Syncope [Recovered/Resolved]
